FAERS Safety Report 7609491-6 (Version None)
Quarter: 2011Q3

REPORT INFORMATION
  Report Type: 
  Country: None (occurrence: None)
  Receive Date: 20110714
  Receipt Date: 20110701
  Transmission Date: 20111222
  Serious: Yes (Hospitalization, Other)
  Sender: FDA-Public Use
  Company Number: PHHY2011JP55822

PATIENT
  Age: 48 Year
  Sex: Male

DRUGS (4)
  1. CAPECITABINE [Interacting]
     Indication: RECTAL CANCER
  2. BEVACIZUMAB [Interacting]
     Indication: RECTAL CANCER
  3. OXALIPLATIN [Suspect]
     Indication: RECTAL CANCER
  4. ZOMETA [Interacting]
     Indication: BONE LESION

REACTIONS (10)
  - HAEMATURIA [None]
  - HAEMOLYTIC ANAEMIA [None]
  - RENAL FAILURE ACUTE [None]
  - DISSEMINATED INTRAVASCULAR COAGULATION [None]
  - HAEMODIALYSIS [None]
  - ENDOTHELIAL DYSFUNCTION [None]
  - BLOOD BILIRUBIN INCREASED [None]
  - DRUG INTERACTION [None]
  - BLOOD CREATININE INCREASED [None]
  - RENAL IMPAIRMENT [None]
